FAERS Safety Report 6248760-1 (Version None)
Quarter: 2009Q2

REPORT INFORMATION
  Report Type: 
  Country: None (occurrence: None)
  Receive Date: 20090629
  Receipt Date: 20090624
  Transmission Date: 20091009
  Serious: Yes (Death, Other)
  Sender: FDA-Public Use
  Company Number: PHHY2009BR25475

PATIENT
  Sex: Male

DRUGS (5)
  1. DIOVAN [Suspect]
     Indication: HYPERTENSION
     Dosage: ONE TABLET TWO TIMES DAILY
     Route: 048
     Dates: start: 20040601, end: 20090109
  2. ROXFLAN [Concomitant]
     Indication: HYPERTENSION
  3. NATRILIX [Concomitant]
     Indication: HYPERTENSION
     Dosage: ONE TABLET DAILY
     Route: 048
  4. ATENOLOL [Concomitant]
     Indication: HYPERTENSION
     Dosage: 100 MG
     Route: 048
  5. INSULIN [Concomitant]
     Indication: DIABETES MELLITUS
     Dosage: TWICE DAILY
     Dates: end: 20090109

REACTIONS (7)
  - AMNESIA [None]
  - BLINDNESS [None]
  - DIABETES MELLITUS [None]
  - DIET REFUSAL [None]
  - GAIT DISTURBANCE [None]
  - MULTI-ORGAN FAILURE [None]
  - RENAL FAILURE [None]
